FAERS Safety Report 4377913-2 (Version None)
Quarter: 2004Q2

REPORT INFORMATION
  Report Type: 
  Country: None (occurrence: None)
  Receive Date: 20040615
  Receipt Date: 20040615
  Transmission Date: 20050107
  Serious: Yes (Hospitalization, Other)
  Sender: FDA-Public Use
  Company Number: None

PATIENT
  Age: 37 Year
  Sex: Male
  Weight: 81.6475 kg

DRUGS (1)
  1. OXYCONTIN [Suspect]
     Indication: BACK PAIN
     Dosage: 40 MG 2X PER ORAL
     Route: 048
     Dates: start: 49890424, end: 20040612

REACTIONS (5)
  - DRUG DEPENDENCE [None]
  - ECONOMIC PROBLEM [None]
  - FEAR [None]
  - LOSS OF EMPLOYMENT [None]
  - RELATIONSHIP BREAKDOWN [None]
